FAERS Safety Report 4737545-0 (Version None)
Quarter: 2005Q3

REPORT INFORMATION
  Report Type: 
  Country: None (occurrence: None)
  Receive Date: 20050809
  Receipt Date: 20050503
  Transmission Date: 20060218
  Serious: No
  Sender: FDA-Public Use
  Company Number: US-GLAXOSMITHKLINE-A0557020A

PATIENT
  Age: 67 Year

DRUGS (4)
  1. COMMIT [Suspect]
     Dates: start: 20050405
  2. LASIX [Concomitant]
  3. ATENOLOL [Concomitant]
  4. ALTACE [Concomitant]

REACTIONS (3)
  - FEELING JITTERY [None]
  - HEART RATE INCREASED [None]
  - HYPERTENSION [None]
